FAERS Safety Report 11767875 (Version 2)
Quarter: 2015Q4

REPORT INFORMATION
  Report Type: Spontaneous
  Country: US (occurrence: US)
  Receive Date: 20151123
  Receipt Date: 20151202
  Transmission Date: 20160304
  Serious: Yes (Other)
  Sender: FDA-Public Use
  Company Number: CHPA2015US013519

PATIENT
  Age: 11 Year
  Sex: Female

DRUGS (1)
  1. TRIAMINIC COUGH AND CONGESTION [Suspect]
     Active Substance: DEXTROMETHORPHAN HYDROBROMIDE\GUAIFENESIN
     Indication: COUGH
     Dosage: 3 TSP, UNK
     Route: 065
     Dates: start: 20151112

REACTIONS (2)
  - Incorrect dose administered [Unknown]
  - Blood glucose increased [Recovered/Resolved]

NARRATIVE: CASE EVENT DATE: 20151112
